FAERS Safety Report 8144965-3 (Version None)
Quarter: 2012Q1

REPORT INFORMATION
  Report Type: 
  Country: None (occurrence: None)
  Receive Date: 20120217
  Receipt Date: 20120215
  Transmission Date: 20120608
  Serious: Yes (Life-Threatening, Disabling, Other)
  Sender: FDA-Public Use
  Company Number: US-MERCK-1202USA00375

PATIENT
  Age: 68 Year
  Sex: Female

DRUGS (9)
  1. AMLODIPINE [Concomitant]
     Route: 065
  2. PRAVASTATIN SODIUM [Concomitant]
     Route: 065
  3. SPIRIVA [Concomitant]
     Route: 065
  4. TEKTURNA [Concomitant]
     Route: 065
  5. LEVOTHYROXINE SODIUM [Concomitant]
     Route: 065
  6. JANUVIA [Suspect]
     Indication: TYPE 2 DIABETES MELLITUS
     Route: 048
     Dates: start: 20090501
  7. PRINZIDE [Concomitant]
     Route: 048
  8. CARVEDILOL [Concomitant]
     Route: 065
  9. PLAVIX [Concomitant]
     Route: 065

REACTIONS (1)
  - PANCREATIC CARCINOMA [None]
